FAERS Safety Report 12775463 (Version 1)
Quarter: 2016Q3

REPORT INFORMATION
  Report Type: Report from Study
  Country: US (occurrence: US)
  Receive Date: 20160923
  Receipt Date: 20160923
  Transmission Date: 20161109
  Serious: Yes (Hospitalization, Other)
  Sender: FDA-Public Use
  Company Number: US-GILEAD-2016-0230805

PATIENT
  Age: 70 Year
  Sex: Male

DRUGS (22)
  1. SILDENAFIL. [Concomitant]
     Active Substance: SILDENAFIL
  2. TRIAMCINOLONE ACETONIDE. [Concomitant]
     Active Substance: TRIAMCINOLONE ACETONIDE
  3. KLONOPIN [Concomitant]
     Active Substance: CLONAZEPAM
  4. METOLAZONE. [Concomitant]
     Active Substance: METOLAZONE
  5. SPIRONOLACTONE. [Concomitant]
     Active Substance: SPIRONOLACTONE
  6. POTASSIUM CHLORIDE. [Concomitant]
     Active Substance: POTASSIUM CHLORIDE
  7. MYCOPHENOLATE MOFETIL. [Concomitant]
     Active Substance: MYCOPHENOLATE MOFETIL
  8. HYDROXYZINE HCL [Concomitant]
     Active Substance: HYDROXYZINE HYDROCHLORIDE
  9. ASPIRIN                            /00002701/ [Concomitant]
     Active Substance: ASPIRIN
  10. TAMSULOSIN HCL [Concomitant]
     Active Substance: TAMSULOSIN
  11. MECLIZINE HCL [Concomitant]
     Active Substance: MECLIZINE HYDROCHLORIDE
  12. GLUCOSAMINE + CHONDROITIN          /01430901/ [Concomitant]
  13. TORSEMIDE. [Concomitant]
     Active Substance: TORSEMIDE
  14. LORAZEPAM. [Concomitant]
     Active Substance: LORAZEPAM
  15. AMBRISENTAN [Suspect]
     Active Substance: AMBRISENTAN
     Indication: SCLERODERMA
  16. FERROUS GLUCONATE [Concomitant]
     Active Substance: FERROUS GLUCONATE
  17. DOCUSATE SODIUM. [Concomitant]
     Active Substance: DOCUSATE SODIUM
  18. CITRACAL + D                       /01438101/ [Concomitant]
  19. AMBRISENTAN [Suspect]
     Active Substance: AMBRISENTAN
     Indication: PULMONARY HYPERTENSION
     Dosage: 10 MG, QD
     Route: 065
     Dates: start: 20151113, end: 20160722
  20. TOPIRAMATE. [Concomitant]
     Active Substance: TOPIRAMATE
  21. CETIRIZINE HCL [Concomitant]
     Active Substance: CETIRIZINE HYDROCHLORIDE
  22. LEVOTHYROXINE. [Concomitant]
     Active Substance: LEVOTHYROXINE

REACTIONS (7)
  - Hyponatraemia [Unknown]
  - Acute kidney injury [Recovered/Resolved]
  - Hypovolaemia [Unknown]
  - Hypokalaemia [Unknown]
  - Cardiac failure congestive [Recovered/Resolved]
  - Hypotension [Unknown]
  - Anaemia [Recovering/Resolving]

NARRATIVE: CASE EVENT DATE: 20160804
